FAERS Safety Report 8381374-6 (Version None)
Quarter: 2012Q2

REPORT INFORMATION
  Report Type: 
  Country: None (occurrence: None)
  Receive Date: 20120523
  Receipt Date: 20120510
  Transmission Date: 20120825
  Serious: Yes (Hospitalization, Other)
  Sender: FDA-Public Use
  Company Number: US-ELI_LILLY_AND_COMPANY-US201205004939

PATIENT
  Age: 63 Year
  Sex: Female

DRUGS (4)
  1. CYMBALTA [Suspect]
     Dosage: UNK, UNKNOWN
  2. CYMBALTA [Suspect]
     Dosage: 40 MG, UNKNOWN
  3. CYMBALTA [Suspect]
     Indication: FIBROMYALGIA
     Dosage: 40 MG, UNKNOWN
     Dates: start: 20110101
  4. CYMBALTA [Suspect]
     Dosage: 30 MG, UNKNOWN

REACTIONS (12)
  - PANCREATITIS ACUTE [None]
  - ABDOMINAL PAIN UPPER [None]
  - DEVICE RELATED INFECTION [None]
  - PYREXIA [None]
  - ANXIETY [None]
  - MAJOR DEPRESSION [None]
  - DRUG WITHDRAWAL SYNDROME [None]
  - DIARRHOEA [None]
  - WRONG TECHNIQUE IN DRUG USAGE PROCESS [None]
  - INFLUENZA LIKE ILLNESS [None]
  - RASH PRURITIC [None]
  - GASTROINTESTINAL PAIN [None]
